FAERS Safety Report 20145891 (Version 2)
Quarter: 2022Q1

REPORT INFORMATION
  Report Type: Report from Study
  Country: BR (occurrence: BR)
  Receive Date: 20211203
  Receipt Date: 20220206
  Transmission Date: 20220423
  Serious: Yes (Hospitalization, Other)
  Sender: FDA-Public Use
  Company Number: BR-BIOGEN-2021BI01072779

PATIENT
  Sex: Female

DRUGS (2)
  1. TYSABRI [Suspect]
     Active Substance: NATALIZUMAB
     Indication: Multiple sclerosis
     Route: 065
     Dates: start: 20130912
  2. TYSABRI [Suspect]
     Active Substance: NATALIZUMAB
     Route: 065
     Dates: start: 202008

REACTIONS (10)
  - Colon cancer [Unknown]
  - Sepsis [Unknown]
  - Cerebrovascular accident [Unknown]
  - Coma [Unknown]
  - Seizure [Recovered/Resolved]
  - Fistula [Unknown]
  - Depression [Not Recovered/Not Resolved]
  - Dyskinesia [Unknown]
  - Nightmare [Unknown]
  - Dizziness [Recovered/Resolved]

NARRATIVE: CASE EVENT DATE: 20190101
